FAERS Safety Report 5455924-3 (Version None)
Quarter: 2007Q3

REPORT INFORMATION
  Report Type: 
  Country: None (occurrence: None)
  Receive Date: 20070918
  Receipt Date: 20070330
  Transmission Date: 20080115
  Serious: Yes (Other)
  Sender: FDA-Public Use
  Company Number: US-ASTRAZENECA-2006UW24346

PATIENT
  Sex: Female
  Weight: 72.7 kg

DRUGS (9)
  1. SEROQUEL [Suspect]
     Indication: PSYCHOTIC DISORDER
     Route: 048
     Dates: start: 19990101, end: 20030101
  2. ZYPREXA [Suspect]
  3. ABILIFY [Concomitant]
  4. CLOZARIL [Concomitant]
  5. GEODON [Concomitant]
  6. HALDOL [Concomitant]
  7. NAVANE [Concomitant]
  8. RISPERDAL [Concomitant]
  9. THORAZINE [Concomitant]

REACTIONS (1)
  - PANCREATITIS [None]
